FAERS Safety Report 10597600 (Version 1)
Quarter: 2014Q4

REPORT INFORMATION
  Report Type: Spontaneous
  Country: US (occurrence: None)
  Receive Date: 20141119
  Receipt Date: 20141119
  Transmission Date: 20150529
  Serious: Yes (Hospitalization, Other)
  Sender: FDA-Public Use
  Company Number: DEP_02358_2014

PATIENT
  Sex: Female

DRUGS (8)
  1. LAZANDA [Suspect]
     Active Substance: FENTANYL CITRATE
     Indication: OSTEOPOROSIS
     Dosage: ONE SPRAY IN EACH NOSTRIL, EVERY 6 HOURS, AS NEEDED, NASAL)
     Route: 045
     Dates: start: 201403
  2. LAZANDA [Suspect]
     Active Substance: FENTANYL CITRATE
     Indication: OFF LABEL USE
     Dosage: ONE SPRAY IN EACH NOSTRIL , EVERY 6 HOURS, AS NEEDED NASAL)
     Route: 045
     Dates: start: 201401, end: 201403
  3. LAZANDA [Suspect]
     Active Substance: FENTANYL CITRATE
     Indication: OFF LABEL USE
     Dosage: ONE SPRAY IN EACH NOSTRIL, EVERY 6 HOURS, AS NEEDED, NASAL)
     Route: 045
     Dates: start: 201403
  4. LAZANDA [Suspect]
     Active Substance: FENTANYL CITRATE
     Indication: ADDISON^S DISEASE
     Dosage: ONE SPRAY IN EACH NOSTRIL , EVERY 6 HOURS, AS NEEDED NASAL)
     Route: 045
     Dates: start: 201401, end: 201403
  5. LAZANDA [Suspect]
     Active Substance: FENTANYL CITRATE
     Indication: FIBROMYALGIA
     Dosage: ONE SPRAY IN EACH NOSTRIL , EVERY 6 HOURS, AS NEEDED NASAL)
     Route: 045
     Dates: start: 201401, end: 201403
  6. LAZANDA [Suspect]
     Active Substance: FENTANYL CITRATE
     Indication: FIBROMYALGIA
     Dosage: ONE SPRAY IN EACH NOSTRIL, EVERY 6 HOURS, AS NEEDED, NASAL)
     Route: 045
     Dates: start: 201403
  7. LAZANDA [Suspect]
     Active Substance: FENTANYL CITRATE
     Indication: OSTEOPOROSIS
     Dosage: ONE SPRAY IN EACH NOSTRIL , EVERY 6 HOURS, AS NEEDED NASAL)
     Route: 045
     Dates: start: 201401, end: 201403
  8. LAZANDA [Suspect]
     Active Substance: FENTANYL CITRATE
     Indication: ADDISON^S DISEASE
     Dosage: ONE SPRAY IN EACH NOSTRIL, EVERY 6 HOURS, AS NEEDED, NASAL)
     Route: 045
     Dates: start: 201403

REACTIONS (7)
  - Streptococcal infection [None]
  - Device issue [None]
  - Medication error [None]
  - Sepsis [None]
  - Overdose [None]
  - Drug tolerance [None]
  - Underdose [None]

NARRATIVE: CASE EVENT DATE: 2014
